FAERS Safety Report 6057604-2 (Version None)
Quarter: 2009Q1

REPORT INFORMATION
  Report Type: 
  Country: None (occurrence: None)
  Receive Date: 20090127
  Receipt Date: 20090127
  Transmission Date: 20090719
  Serious: Yes (Other)
  Sender: FDA-Public Use
  Company Number: None

PATIENT
  Sex: Male
  Weight: 86.1834 kg

DRUGS (2)
  1. LEVAQUIN [Suspect]
     Indication: EAR INFECTION
     Dosage: 500 MG ONCE DAILY PO
     Route: 048
     Dates: start: 20090121, end: 20090121
  2. LEVAQUIN [Suspect]
     Indication: PHARYNGITIS
     Dosage: 500 MG ONCE DAILY PO
     Route: 048
     Dates: start: 20090121, end: 20090121

REACTIONS (6)
  - DYSPHAGIA [None]
  - DYSPNOEA [None]
  - LIP SWELLING [None]
  - LOCAL SWELLING [None]
  - PHARYNGEAL OEDEMA [None]
  - URTICARIA [None]
